FAERS Safety Report 21628094 (Version 8)
Quarter: 2025Q3

REPORT INFORMATION
  Report Type: Spontaneous
  Country: US (occurrence: US)
  Receive Date: 20221122
  Receipt Date: 20250924
  Transmission Date: 20251021
  Serious: Yes (Other)
  Sender: PFIZER
  Company Number: US-PFIZER INC-PV202200106524

PATIENT
  Age: 60 Year
  Sex: Male

DRUGS (1)
  1. XELJANZ XR [Suspect]
     Active Substance: TOFACITINIB CITRATE
     Dosage: 11 MG, DAILY (1 TABLET DAILY FOR 90 DAYS)

REACTIONS (14)
  - Pain [Unknown]
  - Intervertebral disc operation [Unknown]
  - Therapeutic response unexpected [Unknown]
  - Neck pain [Recovering/Resolving]
  - Arthralgia [Unknown]
  - Sleep disorder [Unknown]
  - Musculoskeletal stiffness [Unknown]
  - Dizziness [Unknown]
  - Myalgia [Unknown]
  - Muscular weakness [Unknown]
  - Asthenia [Unknown]
  - Mobility decreased [Unknown]
  - Illness [Not Recovered/Not Resolved]
  - Pharyngeal disorder [Unknown]
